FAERS Safety Report 10217512 (Version 1)
Quarter: 2014Q2

REPORT INFORMATION
  Report Type: Spontaneous
  Country: US (occurrence: US)
  Receive Date: 20140604
  Receipt Date: 20140604
  Transmission Date: 20141212
  Serious: Yes (Disabling, Other)
  Sender: FDA-Public Use
  Company Number: US-ABBVIE-14P-163-1242356-00

PATIENT
  Age: 59 Year
  Sex: Male

DRUGS (1)
  1. ANDROGEL [Suspect]
     Indication: BLOOD TESTOSTERONE DECREASED
     Dates: start: 201109, end: 201201

REACTIONS (4)
  - Spinal artery thrombosis [Unknown]
  - Paraplegia [Unknown]
  - Wheelchair user [Unknown]
  - Injury [Unknown]
